FAERS Safety Report 24328445 (Version 4)
Quarter: 2024Q4

REPORT INFORMATION
  Report Type: Spontaneous
  Country: US (occurrence: US)
  Receive Date: 20240917
  Receipt Date: 20241028
  Transmission Date: 20250115
  Serious: No
  Sender: ROCHE
  Company Number: US-ROCHE-10000082461

PATIENT
  Sex: Female

DRUGS (6)
  1. ACTEMRA [Suspect]
     Active Substance: TOCILIZUMAB
     Indication: Rheumatoid arthritis
     Dosage: STRENGTH: 162MG/0.9M
     Route: 058
     Dates: start: 202309
  2. ACTEMRA [Suspect]
     Active Substance: TOCILIZUMAB
     Dosage: STRENGTH: 162MG/0.9M
     Route: 058
     Dates: start: 20240910
  3. IBUPROFEN [Concomitant]
     Active Substance: IBUPROFEN
     Dosage: END DATE: 11/14/2024
     Route: 048
     Dates: start: 20240515
  4. METHOTREXATE SODIUM [Concomitant]
     Active Substance: METHOTREXATE SODIUM
     Route: 048
     Dates: start: 20240515
  5. FOLIC ACID [Concomitant]
     Active Substance: FOLIC ACID
     Route: 048
     Dates: start: 20240515
  6. PREDNISONE [Concomitant]
     Active Substance: PREDNISONE
     Dosage: TAKE 2 TABLET BY ORAL ROUTE EVERY DAY X 5 DAYS, THEN 1 TAB DAILY X 5 DAYS
     Route: 048

REACTIONS (4)
  - Retching [Unknown]
  - Vomiting [Unknown]
  - Nausea [Unknown]
  - Influenza [Recovered/Resolved]
